FAERS Safety Report 6767100-2 (Version None)
Quarter: 2010Q2

REPORT INFORMATION
  Report Type: 
  Country: None (occurrence: None)
  Receive Date: 20100614
  Receipt Date: 20100531
  Transmission Date: 20101027
  Serious: Yes (Other)
  Sender: FDA-Public Use
  Company Number: US-RB-011320-10

PATIENT
  Sex: Female

DRUGS (1)
  1. MUCINEX [Suspect]
     Dosage: TAKING 25-35 MUCINEX TABLETS A DAY FOR THE PAST 23-27 MONTHS
     Route: 048

REACTIONS (2)
  - DRUG DEPENDENCE [None]
  - NO ADVERSE EVENT [None]
